FAERS Safety Report 4441508-2 (Version None)
Quarter: 2004Q3

REPORT INFORMATION
  Report Type: 
  Country: None (occurrence: None)
  Receive Date: 20040728
  Receipt Date: 20040512
  Transmission Date: 20050211
  Serious: No
  Sender: FDA-Public Use
  Company Number: USA040567305

PATIENT
  Age: 11 Year
  Sex: Female
  Weight: 45 kg

DRUGS (2)
  1. STRATTERA [Suspect]
     Dosage: 80 MG/1 DAY
     Dates: start: 20030501
  2. ANTIBIOTIC [Concomitant]

REACTIONS (4)
  - DYSGEUSIA [None]
  - PRESCRIBED OVERDOSE [None]
  - SENSATION OF FOREIGN BODY [None]
  - STREPTOCOCCAL INFECTION [None]
